FAERS Safety Report 7946278-9 (Version None)
Quarter: 2011Q4

REPORT INFORMATION
  Report Type: 
  Country: None (occurrence: None)
  Receive Date: 20111129
  Receipt Date: 20111121
  Transmission Date: 20120403
  Serious: Yes (Hospitalization)
  Sender: FDA-Public Use
  Company Number: ES-GLAXOSMITHKLINE-Z0012337A

PATIENT
  Sex: Female
  Weight: 62 kg

DRUGS (2)
  1. OFATUMUMAB [Suspect]
     Route: 042
     Dates: start: 20101004
  2. OFATUMUMAB [Suspect]
     Indication: RHEUMATOID ARTHRITIS
     Route: 042
     Dates: start: 20081203

REACTIONS (1)
  - EMPYEMA [None]
